FAERS Safety Report 13299933 (Version 1)
Quarter: 2017Q1

REPORT INFORMATION
  Report Type: Spontaneous
  Country: FR (occurrence: FR)
  Receive Date: 20170306
  Receipt Date: 20170306
  Transmission Date: 20170428
  Serious: Yes (Death)
  Sender: FDA-Public Use
  Company Number: FR-ABBVIE-17P-056-1897253-00

PATIENT
  Sex: Male

DRUGS (10)
  1. VALIUM [Suspect]
     Active Substance: DIAZEPAM
     Indication: PSYCHOTIC DISORDER
     Route: 048
  2. KEPPRA [Suspect]
     Active Substance: LEVETIRACETAM
     Indication: EPILEPSY
     Route: 048
  3. BISOPROLOL FUMARATE. [Suspect]
     Active Substance: BISOPROLOL FUMARATE
     Indication: MEDICATION ERROR
     Route: 048
     Dates: start: 20170106, end: 20170106
  4. FUROSEMIDE. [Suspect]
     Active Substance: FUROSEMIDE
     Indication: MEDICATION ERROR
     Route: 048
     Dates: start: 20170106, end: 20170106
  5. LARGACTIL [Suspect]
     Active Substance: CHLORPROMAZINE
     Indication: PSYCHOTIC DISORDER
     Route: 048
  6. CORDARONE [Suspect]
     Active Substance: AMIODARONE HYDROCHLORIDE
     Indication: MEDICATION ERROR
     Route: 048
     Dates: start: 20170106, end: 20170106
  7. TEGRETOL [Suspect]
     Active Substance: CARBAMAZEPINE
     Indication: PSYCHOTIC DISORDER
     Route: 048
  8. CHARCOAL, ACTIVATED [Suspect]
     Active Substance: ACTIVATED CHARCOAL
     Indication: ACCIDENTAL OVERDOSE
     Route: 048
     Dates: start: 20170106, end: 20170106
  9. METOPROLOL (METOPROLOL TARTRATE) [Suspect]
     Active Substance: METOPROLOL TARTRATE
     Indication: ACCIDENTAL OVERDOSE
     Route: 048
     Dates: start: 20170106, end: 20170106
  10. VALPROATE SODIUM (MICROPAKINE) [Suspect]
     Active Substance: VALPROATE SODIUM
     Indication: EPILEPSY
     Route: 048

REACTIONS (4)
  - Cardiac arrest [Fatal]
  - Accidental overdose [None]
  - Wrong patient received medication [None]
  - Medication error [Fatal]

NARRATIVE: CASE EVENT DATE: 20170106
